FAERS Safety Report 20166532 (Version 1)
Quarter: 2021Q4

REPORT INFORMATION
  Report Type: Report from Study
  Country: EG (occurrence: EG)
  Receive Date: 20211209
  Receipt Date: 20211209
  Transmission Date: 20220303
  Serious: Yes (Other)
  Sender: FDA-Public Use
  Company Number: EG-NOVARTISPH-NVSC2021EG276149

PATIENT
  Age: 56 Year
  Sex: Male

DRUGS (6)
  1. ENTRESTO [Suspect]
     Active Substance: SACUBITRIL\VALSARTAN
     Indication: Cardiac failure
     Dosage: 50 MG, BID
     Route: 048
     Dates: start: 20210630, end: 20210903
  2. ENTRESTO [Suspect]
     Active Substance: SACUBITRIL\VALSARTAN
     Dosage: 100 MG, BID
     Route: 048
     Dates: start: 20210904, end: 20211128
  3. ENTRESTO [Suspect]
     Active Substance: SACUBITRIL\VALSARTAN
     Dosage: 200 MG, BID
     Route: 048
     Dates: start: 20211128
  4. AMADOL [Concomitant]
     Indication: Analgesic therapy
     Dosage: 100 MG, TID
     Route: 065
     Dates: start: 2013, end: 20210615
  5. AMADOL [Concomitant]
     Dosage: 100 MG, QD
     Route: 065
     Dates: start: 20210615
  6. GAPTIN [Concomitant]
     Indication: Analgesic therapy
     Dosage: 400 MG, BID
     Route: 048
     Dates: start: 20210801

REACTIONS (3)
  - Dyspnoea [Recovering/Resolving]
  - Insomnia [Recovering/Resolving]
  - Pulmonary oedema [Recovering/Resolving]

NARRATIVE: CASE EVENT DATE: 20210903
